FAERS Safety Report 7464091-6 (Version None)
Quarter: 2011Q2

REPORT INFORMATION
  Report Type: 
  Country: None (occurrence: None)
  Receive Date: 20110506
  Receipt Date: 20091028
  Transmission Date: 20111010
  Serious: Yes (Hospitalization, Other)
  Sender: FDA-Public Use
  Company Number: DE-GENENTECH-318123

PATIENT
  Age: 84 Year
  Sex: Female

DRUGS (1)
  1. LUCENTIS [Suspect]
     Indication: AGE-RELATED MACULAR DEGENERATION
     Dosage: UNK
     Route: 031

REACTIONS (5)
  - BLOOD PRESSURE ABNORMAL [None]
  - DIZZINESS [None]
  - EYE INFLAMMATION [None]
  - HYPERTENSION [None]
  - VISUAL ACUITY REDUCED [None]
